FAERS Safety Report 8023751-9 (Version None)
Quarter: 2012Q1

REPORT INFORMATION
  Report Type: 
  Country: None (occurrence: None)
  Receive Date: 20120105
  Receipt Date: 20120104
  Transmission Date: 20120608
  Serious: Yes (Hospitalization, Other)
  Sender: FDA-Public Use
  Company Number: US-ELI_LILLY_AND_COMPANY-US201112005821

PATIENT
  Sex: Female

DRUGS (7)
  1. ZYPREXA [Suspect]
     Dosage: 40 MG, QD
  2. ANTIDEPRESSANTS [Concomitant]
     Indication: DEPRESSION
  3. ZYPREXA [Suspect]
     Dosage: 10 MG, QD
  4. SEROQUEL [Concomitant]
     Dosage: 10 MG, QD
  5. ZYPREXA [Suspect]
     Dosage: 15 MG, UNKNOWN
  6. ZYPREXA [Suspect]
     Dosage: UNK UNK, UNKNOWN
  7. SEROQUEL [Concomitant]
     Dosage: 600 MG, QD

REACTIONS (16)
  - INTENTIONAL SELF-INJURY [None]
  - ADVERSE EVENT [None]
  - CONVULSION [None]
  - TOXICITY TO VARIOUS AGENTS [None]
  - POST-TRAUMATIC STRESS DISORDER [None]
  - SCHIZOPHRENIA [None]
  - OVERDOSE [None]
  - BLOOD CHOLESTEROL INCREASED [None]
  - BRAIN INJURY [None]
  - NEUROTOXICITY [None]
  - SUICIDAL BEHAVIOUR [None]
  - WEIGHT INCREASED [None]
  - INJURY [None]
  - PSYCHOTIC DISORDER [None]
  - DELIRIUM [None]
  - ASTHENIA [None]
